FAERS Safety Report 21086813 (Version 1)
Quarter: 2022Q3

REPORT INFORMATION
  Report Type: Report from Study
  Country: US (occurrence: US)
  Receive Date: 20220715
  Receipt Date: 20220715
  Transmission Date: 20221026
  Serious: Yes (Hospitalization, Other)
  Sender: FDA-Public Use
  Company Number: US-VTX-2337-HN-001-1161004-20211006-0001SG

PATIENT
  Age: 66 Year
  Sex: Female
  Weight: 58 kg

DRUGS (19)
  1. METHADONE [Suspect]
     Active Substance: METHADONE HYDROCHLORIDE
     Indication: Substance use disorder
     Dosage: 70 MG X 1 X 1 DAYS
     Route: 048
     Dates: start: 20161026
  2. ACETAMINOPHEN [Concomitant]
     Active Substance: ACETAMINOPHEN
     Indication: Prophylaxis
     Dosage: 650 MILLIGRAM
     Route: 048
     Dates: start: 20210825, end: 20210825
  3. ACETAMINOPHEN [Concomitant]
     Active Substance: ACETAMINOPHEN
     Dosage: 650 MG?FREQUENCY : ONCE
     Route: 048
     Dates: start: 20210901, end: 20210901
  4. ADVAIR INHALER (FLUTICASONE PROPION-SALMETEROL) [Concomitant]
     Indication: Anxiety
     Dosage: 1 PUFF X 2 X 1 DAYS
     Route: 055
     Dates: start: 20200128
  5. ADVAIR INHALER (FLUTICASONE PROPION-SALMETEROL) [Concomitant]
     Indication: Injection site oedema
  6. CLONIDINE [Concomitant]
     Active Substance: CLONIDINE
     Indication: Hypertension
     Dosage: 0.1 MG
     Route: 048
     Dates: start: 20150115
  7. TRULICITY [Concomitant]
     Active Substance: DULAGLUTIDE
     Indication: Diabetes mellitus
     Dosage: 1.5 MG X 1 X 1 WEEKS
     Route: 058
     Dates: start: 20210721
  8. GABAPENTIN [Concomitant]
     Active Substance: GABAPENTIN
     Indication: Back pain
     Dosage: 600 MG
     Route: 048
     Dates: start: 20210721
  9. LISINOPRIL [Concomitant]
     Active Substance: LISINOPRIL
     Indication: Hypertension
     Dosage: 5 MG
     Route: 048
     Dates: start: 20161026
  10. METFORMIN [Concomitant]
     Active Substance: METFORMIN HYDROCHLORIDE
     Indication: Diabetes mellitus
     Dosage: 500 MILLIGRAM
     Route: 065
     Dates: start: 20210825, end: 20210910
  11. REGLAN [Concomitant]
     Active Substance: METOCLOPRAMIDE HYDROCHLORIDE
     Indication: Jejunostomy
     Dosage: 5 MG X 4 X 1 DAYS
     Route: 065
     Dates: start: 20210810
  12. OXYCODONE [Concomitant]
     Active Substance: OXYCODONE
     Indication: Adverse event
     Dosage: 5 MG?FREQUENCY : PRN
     Route: 065
     Dates: start: 20210804, end: 20210910
  13. OXYCODONE [Concomitant]
     Active Substance: OXYCODONE
     Indication: Abdominal pain
     Dosage: 5 MILLIGRAM
     Route: 065
     Dates: start: 20210811, end: 20210910
  14. ALBUTEROL [Concomitant]
     Active Substance: ALBUTEROL
     Indication: Asthma
     Dosage: 2 PUFF
     Route: 055
     Dates: start: 20200128
  15. ALBUTEROL [Concomitant]
     Active Substance: ALBUTEROL
     Indication: Chronic obstructive pulmonary disease
  16. ALBUTEROL [Concomitant]
     Active Substance: ALBUTEROL
     Indication: Bronchitis chronic
  17. SCOPOLAMINE [Concomitant]
     Active Substance: SCOPOLAMINE
     Indication: Tracheostomy
     Dosage: 1 MILLIGRAM
     Route: 062
     Dates: start: 20210804, end: 20210910
  18. SCOPOLAMINE [Concomitant]
     Active Substance: SCOPOLAMINE
     Indication: Secretion discharge
  19. SUMATRIPTAN [Concomitant]
     Active Substance: SUMATRIPTAN
     Indication: Headache
     Dosage: UNK
     Route: 048
     Dates: start: 20190207

REACTIONS (1)
  - Ileus [Not Recovered/Not Resolved]

NARRATIVE: CASE EVENT DATE: 20211001
